FAERS Safety Report 6085609-4 (Version None)
Quarter: 2009Q1

REPORT INFORMATION
  Report Type: 
  Country: None (occurrence: None)
  Receive Date: 20090217
  Receipt Date: 20090217
  Transmission Date: 20090719
  Serious: No
  Sender: FDA-Public Use
  Company Number: None

PATIENT
  Age: 38 Year
  Sex: Female
  Weight: 95.2554 kg

DRUGS (1)
  1. PSEUDOEPHEDRINE HCL/CHLORPHENIRAMINE MALEATE [Suspect]
     Indication: SINUS DISORDER
     Dosage: 120-8MG TWICE DAILY
     Dates: start: 20090212, end: 20090212

REACTIONS (3)
  - BLOOD GLUCOSE INCREASED [None]
  - BLOOD PRESSURE SYSTOLIC INCREASED [None]
  - HEART RATE INCREASED [None]
